FAERS Safety Report 24065724 (Version 4)
Quarter: 2024Q4

REPORT INFORMATION
  Report Type: Spontaneous
  Country: FR (occurrence: FR)
  Receive Date: 20240709
  Receipt Date: 20241001
  Transmission Date: 20250115
  Serious: Yes (Life-Threatening, Hospitalization, Other)
  Sender: FRESENIUS KABI
  Company Number: None

PATIENT
  Age: 72 Year
  Sex: Female

DRUGS (8)
  1. TYENNE [Suspect]
     Active Substance: TOCILIZUMAB-AAZG
     Indication: Rheumatoid arthritis
     Dosage: FORM OF ADMIN: INFUSION?LOT NUMBERS: 16TA10;16SM02
     Route: 042
     Dates: start: 20240703
  2. TYENNE [Suspect]
     Active Substance: TOCILIZUMAB-AAZG
     Indication: Rheumatoid arthritis
     Dosage: 2 VIALS OF 80 MG?START TIME: 11 A.M.?STOP TIME: 19:30 P.M.?DURATION: 6 HOURS AND 30 MINUTES
  3. TYENNE [Suspect]
     Active Substance: TOCILIZUMAB-AAZG
     Dosage: 1 BOTTLE OF 400 MG?1ST INFUSION
  4. TYENNE [Suspect]
     Active Substance: TOCILIZUMAB-AAZG
     Dosage: 110TH COURSE OF TOCILIZUMAB
     Dates: start: 20240703
  5. LOXEN [Concomitant]
     Indication: Hypertension
     Dosage: 50GX2?DURATION: }1YEAR
  6. ESIDREX [Concomitant]
     Active Substance: HYDROCHLOROTHIAZIDE
     Indication: Hypertension
     Dosage: 1 MORNING?DURATION: }1YEAR?25 MG
  7. VALSARTAN [Concomitant]
     Active Substance: VALSARTAN
     Indication: Hypertension
     Dosage: 1/D?80MG?}1YEAR : DURATION OF START
  8. FENOFIBRATE [Concomitant]
     Active Substance: FENOFIBRATE
     Indication: Dyslipidaemia
     Dosage: 1/D?}1YEAR : DURATION OF START

REACTIONS (3)
  - Anaphylactic shock [Recovered/Resolved]
  - Product substitution issue [Recovered/Resolved]
  - Diarrhoea [Unknown]

NARRATIVE: CASE EVENT DATE: 20240703
